FAERS Safety Report 8316027 (Version 2)
Quarter: 2012Q4

REPORT INFORMATION
  Report Type: 
  Country: PR (occurrence: PR)
  Receive Date: 20111229
  Receipt Date: 20121018
  Transmission Date: 20130627
  Serious: Yes (Hospitalization)
  Sender: FDA-Public Use
  Company Number: PR-ABBOTT-11P-131-0886506-00

PATIENT
  Age: 27 Year
  Sex: Female
  Weight: 105.33 kg

DRUGS (5)
  1. HUMIRA 40 MG/0.8 ML PEN [Suspect]
     Indication: CROHN^S DISEASE
     Route: 058
     Dates: start: 201108, end: 201110
  2. HUMIRA 40 MG/0.8 ML PEN [Suspect]
     Dosage: Initial dose
     Route: 058
     Dates: start: 20111202, end: 20111202
  3. HUMIRA 40 MG/0.8 ML PEN [Suspect]
     Dosage: Second dose
     Route: 058
     Dates: start: 20111212
  4. ASACOL [Concomitant]
     Indication: PRODUCT USED FOR UNKNOWN INDICATION
     Route: 048
  5. FOLIC ACID [Concomitant]
     Indication: PRODUCT USED FOR UNKNOWN INDICATION
     Route: 048

REACTIONS (2)
  - Vaginal haemorrhage [Recovered/Resolved]
  - Vaginal haemorrhage [Not Recovered/Not Resolved]
